FAERS Safety Report 9177488 (Version 3)
Quarter: 2013Q2

REPORT INFORMATION
  Report Type: Spontaneous
  Country: BR (occurrence: BR)
  Receive Date: 20130321
  Receipt Date: 20130405
  Transmission Date: 20140414
  Serious: Yes (Hospitalization, Other)
  Sender: FDA-Public Use
  Company Number: PHHY2013BR025920

PATIENT
  Sex: Female

DRUGS (3)
  1. RITALINA [Suspect]
     Indication: DEPRESSION
     Dosage: 1 DF, DAILY
     Route: 048
  2. RITALINA [Suspect]
     Dosage: 1.5 DF, DAILY
     Route: 048
  3. CONCERTA [Suspect]
     Dosage: UNK UKN, UNK

REACTIONS (5)
  - Depression [Not Recovered/Not Resolved]
  - Somnolence [Not Recovered/Not Resolved]
  - Weight increased [Not Recovered/Not Resolved]
  - Mood altered [Not Recovered/Not Resolved]
  - Drug dependence [Unknown]
